FAERS Safety Report 4639587-2 (Version None)
Quarter: 2005Q1

REPORT INFORMATION
  Report Type: 
  Country: None (occurrence: None)
  Receive Date: 20050328
  Receipt Date: 20050210
  Transmission Date: 20050727
  Serious: No
  Sender: FDA-Public Use
  Company Number: USA050290498

PATIENT
  Age: 6 Year
  Sex: Female
  Weight: 22 kg

DRUGS (2)
  1. STRATTERA [Suspect]
     Dosage: 18 MG DAY
     Dates: start: 20050209
  2. CLONIDINE [Concomitant]

REACTIONS (3)
  - FEELING ABNORMAL [None]
  - MYDRIASIS [None]
  - VOMITING [None]
